FAERS Safety Report 20876725 (Version 2)
Quarter: 2022Q3

REPORT INFORMATION
  Report Type: Spontaneous
  Country: US (occurrence: US)
  Receive Date: 20220526
  Receipt Date: 20220826
  Transmission Date: 20221026
  Serious: No
  Sender: FDA-Public Use
  Company Number: US-BRISTOL-MYERS SQUIBB COMPANY-2022-032866

PATIENT
  Age: 84 Year
  Sex: Male
  Weight: 74.843 kg

DRUGS (1)
  1. REVLIMID [Suspect]
     Active Substance: LENALIDOMIDE
     Indication: Plasma cell myeloma
     Dosage: FREQUENCY ; 21 DAY OF A 28 DAY CYCLE
     Route: 048

REACTIONS (3)
  - Platelet count decreased [Recovering/Resolving]
  - Insomnia [Unknown]
  - Fatigue [Unknown]
